FAERS Safety Report 8307585-3 (Version None)
Quarter: 2012Q2

REPORT INFORMATION
  Report Type: 
  Country: None (occurrence: None)
  Receive Date: 20120424
  Receipt Date: 20120416
  Transmission Date: 20120825
  Serious: Yes (Other)
  Sender: FDA-Public Use
  Company Number: US-CELGENEUS-163-21880-12041906

PATIENT
  Sex: Female
  Weight: 68.9 kg

DRUGS (1)
  1. REVLIMID [Suspect]
     Dosage: 5 MILLIGRAM
     Route: 048
     Dates: start: 20110921, end: 20120113

REACTIONS (2)
  - CHEST PAIN [None]
  - DILATATION VENTRICULAR [None]
